FAERS Safety Report 25118467 (Version 2)
Quarter: 2025Q3

REPORT INFORMATION
  Report Type: Spontaneous
  Country: US (occurrence: US)
  Receive Date: 20250325
  Receipt Date: 20250731
  Transmission Date: 20251020
  Serious: Yes (Other)
  Sender: PFIZER
  Company Number: US-PFIZER INC-PV202500035102

PATIENT
  Age: 56 Year
  Sex: Male

DRUGS (2)
  1. XELJANZ XR [Suspect]
     Active Substance: TOFACITINIB CITRATE
     Indication: Rheumatoid arthritis
     Dosage: 11 MG, DAILY
     Route: 048
  2. XELJANZ XR [Suspect]
     Active Substance: TOFACITINIB CITRATE
     Dosage: 11 MG TABLET BY MOUTH ONCE DAILY
     Route: 048

REACTIONS (6)
  - Pneumonia [Recovering/Resolving]
  - Wheezing [Unknown]
  - Cough [Unknown]
  - Nasopharyngitis [Unknown]
  - Immune system disorder [Unknown]
  - Illness [Not Recovered/Not Resolved]
